FAERS Safety Report 9856192 (Version 1)
Quarter: 2014Q1

REPORT INFORMATION
  Report Type: Spontaneous
  Country: US (occurrence: US)
  Receive Date: 20140130
  Receipt Date: 20140130
  Transmission Date: 20141002
  Serious: No
  Sender: FDA-Public Use
  Company Number: US-B.I. PHARMACEUTICALS,INC./RIDGEFIELD-2014-BI-02778BP

PATIENT
  Sex: Female

DRUGS (1)
  1. MIRAPEX [Suspect]
     Indication: PARKINSON^S DISEASE
     Dosage: 3 MG
     Route: 048
     Dates: start: 201309, end: 20140119

REACTIONS (4)
  - Hallucination [Not Recovered/Not Resolved]
  - Insomnia [Recovered/Resolved]
  - Impulsive behaviour [Recovered/Resolved]
  - Masked facies [Not Recovered/Not Resolved]
